FAERS Safety Report 8226895-1 (Version None)
Quarter: 2012Q1

REPORT INFORMATION
  Report Type: 
  Country: None (occurrence: None)
  Receive Date: 20120322
  Receipt Date: 20120316
  Transmission Date: 20120608
  Serious: Yes (Hospitalization)
  Sender: FDA-Public Use
  Company Number: FR-BAYER-2012-026841

PATIENT
  Age: 46 Year
  Sex: Male

DRUGS (5)
  1. UNKNOWN [Concomitant]
     Indication: HIV INFECTION
     Route: 048
  2. NORVIR [Interacting]
     Indication: HIV INFECTION
     Route: 048
  3. LEVITRA [Suspect]
     Indication: ERECTILE DYSFUNCTION
     Dosage: UNK
     Route: 048
     Dates: start: 20120131, end: 20120207
  4. DARUNAVIR HYDRATE [Interacting]
     Indication: HIV INFECTION
     Route: 048
  5. TRUVADA [Concomitant]
     Indication: HIV INFECTION
     Route: 048

REACTIONS (4)
  - SCOTOMA [None]
  - VISION BLURRED [None]
  - METAMORPHOPSIA [None]
  - VISUAL ACUITY REDUCED [None]
